FAERS Safety Report 8276177-7 (Version None)
Quarter: 2012Q2

REPORT INFORMATION
  Report Type: 
  Country: None (occurrence: None)
  Receive Date: 20120406
  Receipt Date: 20120330
  Transmission Date: 20120825
  Serious: Yes (Death)
  Sender: FDA-Public Use
  Company Number: DSA_55860_2012

PATIENT
  Sex: Female

DRUGS (1)
  1. XENAZINE [Suspect]
     Indication: HUNTINGTON'S DISEASE
     Dosage: (18.75 MG, TOTAL DAILY DOSE: [1.5 TABLETS TWICE DAILY] ORAL)
     Route: 048

REACTIONS (1)
  - DEATH [None]
